FAERS Safety Report 9845290 (Version 1)
Quarter: 2014Q1

REPORT INFORMATION
  Report Type: Report from Study
  Country: US (occurrence: US)
  Receive Date: 20140127
  Receipt Date: 20140127
  Transmission Date: 20141002
  Serious: Yes (Death, Other)
  Sender: FDA-Public Use
  Company Number: US-ASTELLAS-2014US000680

PATIENT
  Age: 73 Year
  Sex: Female

DRUGS (1)
  1. ERLOTINIB TABLET [Suspect]
     Indication: LUNG NEOPLASM MALIGNANT
     Dosage: 100 MG, UID/QD
     Route: 065
     Dates: start: 201102, end: 201305

REACTIONS (4)
  - Incorrect dose administered [Unknown]
  - Drug ineffective [Unknown]
  - Death [Fatal]
  - Recurrent cancer [Unknown]
